FAERS Safety Report 24833709 (Version 4)
Quarter: 2025Q1

REPORT INFORMATION
  Report Type: Report from Study
  Country: KR (occurrence: KR)
  Receive Date: 20250112
  Receipt Date: 20250124
  Transmission Date: 20250409
  Serious: Yes (Hospitalization, Other)
  Sender: ABBVIE
  Company Number: KR-ABBVIE-6075916

PATIENT
  Age: 41 Year
  Sex: Male

DRUGS (11)
  1. SKYRIZI [Suspect]
     Active Substance: RISANKIZUMAB-RZAA
     Indication: Psoriasis
     Route: 058
     Dates: start: 20240612, end: 20240612
  2. SKYRIZI [Suspect]
     Active Substance: RISANKIZUMAB-RZAA
     Route: 058
     Dates: start: 20240321, end: 20240321
  3. SKYRIZI [Suspect]
     Active Substance: RISANKIZUMAB-RZAA
     Route: 058
     Dates: start: 20231130, end: 20231130
  4. SKYRIZI [Suspect]
     Active Substance: RISANKIZUMAB-RZAA
     Route: 058
     Dates: start: 20240925, end: 20240925
  5. SKYRIZI [Suspect]
     Active Substance: RISANKIZUMAB-RZAA
     Route: 058
     Dates: start: 20231228, end: 20231228
  6. SKYRIZI [Suspect]
     Active Substance: RISANKIZUMAB-RZAA
     Route: 058
     Dates: start: 20241218, end: 20241218
  7. GODEX [Concomitant]
     Indication: Aspartate aminotransferase increased
     Route: 048
     Dates: start: 20240308, end: 20240313
  8. EZETIMIBE\ROSUVASTATIN [Concomitant]
     Active Substance: EZETIMIBE\ROSUVASTATIN
     Indication: Hypertension
     Dosage: TAB 10/10MG:EZETIMIBE 10, ROSUVASTATIN CALCIUM 10.4 (10 AS ROSUVASTATIN)
     Route: 048
     Dates: start: 20240301
  9. AMLODIPINE BESYLATE\HYDROCHLOROTHIAZIDE\OLMESARTAN MEDOXOMIL [Concomitant]
     Active Substance: AMLODIPINE BESYLATE\HYDROCHLOROTHIAZIDE\OLMESARTAN MEDOXOMIL
     Indication: Hypertension
     Dosage: TAB 5/20/12.5MG: AMLODIPINE BESYLATE 6.944 (5 AS AMLODIPINE), OLMESARTAN MEDOXOMIL 20, HYDROCHLOR...
     Route: 048
     Dates: start: 20240308, end: 20240618
  10. OLMESARTAN MEDOXOMIL [Concomitant]
     Active Substance: OLMESARTAN MEDOXOMIL
     Indication: Hypertension
     Dosage: TAB 20MG
     Route: 048
     Dates: start: 20240612
  11. ESOMEZOL DR [Concomitant]
     Indication: Gastrointestinal disorder prophylaxis
     Dosage: ENTERIC-COATED TABLET SECTION: ESOMEPRAZOLE MAGNESIUM TRIHYDRATE 11.125 SUSTAINED-RELEASE ENTERIC...
     Route: 048
     Dates: start: 20240301, end: 20240307

REACTIONS (1)
  - Cerebral infarction [Recovering/Resolving]

NARRATIVE: CASE EVENT DATE: 20240301
